FAERS Safety Report 20198374 (Version 2)
Quarter: 2022Q1

REPORT INFORMATION
  Report Type: Spontaneous
  Country: GR (occurrence: GR)
  Receive Date: 20211217
  Receipt Date: 20220122
  Transmission Date: 20220424
  Serious: Yes (Death, Life-Threatening, Hospitalization, Other)
  Sender: FDA-Public Use
  Company Number: GR-MEDAC-2021001947

PATIENT
  Age: 65 Year
  Sex: Male

DRUGS (3)
  1. METHOTREXATE [Suspect]
     Active Substance: METHOTREXATE
     Indication: Psoriatic arthropathy
     Dosage: CUMULATIVE DOSE OF APPROXIMATELY 5GR
  2. SITAGLIPTIN PHOSPHATE [Concomitant]
     Active Substance: SITAGLIPTIN PHOSPHATE
     Indication: Type 2 diabetes mellitus
  3. METFORMIN [Concomitant]
     Active Substance: METFORMIN HYDROCHLORIDE
     Indication: Type 2 diabetes mellitus

REACTIONS (10)
  - Cholestasis [Fatal]
  - Pleural effusion [Unknown]
  - Drug-induced liver injury [Fatal]
  - Ascites [Fatal]
  - Palmar erythema [Unknown]
  - Spider naevus [Unknown]
  - Chronic hepatic failure [Fatal]
  - Hepatic cirrhosis [Fatal]
  - Portal hypertensive gastropathy [Unknown]
  - Peritonitis bacterial [Fatal]
